FAERS Safety Report 23335052 (Version 1)
Quarter: 2023Q4

REPORT INFORMATION
  Report Type: Spontaneous
  Country: JP (occurrence: JP)
  Receive Date: 20231225
  Receipt Date: 20231225
  Transmission Date: 20240110
  Serious: Yes (Life-Threatening, Hospitalization, Other)
  Sender: FDA-Public Use
  Company Number: JP-USV-002263

PATIENT
  Age: 77 Year
  Sex: Male
  Weight: 37.7 kg

DRUGS (9)
  1. ZOLEDRONIC ACID [Suspect]
     Active Substance: ZOLEDRONIC ACID
     Indication: Metastases to bone
     Dosage: TOTAL DOSE (MG): 336
  2. MAGNESIUM OXIDE [Concomitant]
     Active Substance: MAGNESIUM OXIDE
     Indication: Product used for unknown indication
  3. GOSERELIN ACETATE [Concomitant]
     Active Substance: GOSERELIN ACETATE
     Indication: Hormone therapy
  4. BICALUTAMIDE [Concomitant]
     Active Substance: BICALUTAMIDE
     Indication: Hormone therapy
  5. PRAVASTATIN [Concomitant]
     Active Substance: PRAVASTATIN
  6. GLYCYRRHIZIN [Concomitant]
     Active Substance: GLYCYRRHIZIN
  7. URSODIOL [Concomitant]
     Active Substance: URSODIOL
  8. METHYLCOBALAMIN [Concomitant]
     Active Substance: METHYLCOBALAMIN
  9. LIMAPROST [Concomitant]
     Active Substance: LIMAPROST

REACTIONS (4)
  - Renal tubular acidosis [Recovered/Resolved]
  - Hypocalcaemia [Recovered/Resolved]
  - Renal impairment [Recovered/Resolved]
  - Incorrect product administration duration [Recovered/Resolved]
